FAERS Safety Report 4738665-7 (Version None)
Quarter: 2005Q3

REPORT INFORMATION
  Report Type: 
  Country: None (occurrence: None)
  Receive Date: 20050729
  Receipt Date: 20040723
  Transmission Date: 20060218
  Serious: Yes (Hospitalization)
  Sender: FDA-Public Use
  Company Number: US-2004-029275

PATIENT
  Age: 40 Year
  Sex: Male

DRUGS (1)
  1. MAGNEVIST [Suspect]
     Indication: NUCLEAR MAGNETIC RESONANCE IMAGING
     Dosage: 20 ML, 1 DOSE, INTRAVENOUS
     Route: 042
     Dates: start: 20040721, end: 20040721

REACTIONS (3)
  - DYSPNOEA [None]
  - NAUSEA [None]
  - SWOLLEN TONGUE [None]
